FAERS Safety Report 9227024 (Version 2)
Quarter: 2013Q2

REPORT INFORMATION
  Report Type: Spontaneous
  Country: US (occurrence: None)
  Receive Date: 20130410
  Receipt Date: 20130521
  Transmission Date: 20140414
  Serious: Yes (Other)
  Sender: FDA-Public Use
  Company Number: JPI-P-030926

PATIENT
  Age: 68 Year
  Sex: Male
  Weight: 110.22 kg

DRUGS (20)
  1. XYREM (500 MILLIGRAM/MILLILITERS, SOLUTION) (SODIUM OXYBATE) [Suspect]
     Indication: RESTLESS LEGS SYNDROME
     Route: 048
     Dates: start: 200903
  2. LISINOPRIL [Concomitant]
  3. METOPROLOL SUCCINATE [Concomitant]
  4. ACETYLSALICYCLIC ACID [Concomitant]
  5. ATORVASTATIN CALCIUM [Concomitant]
  6. NIACIN [Concomitant]
  7. GABAPENTIN [Concomitant]
  8. PRAMIPEXOLE DIHYDROCHLORIDE [Concomitant]
  9. CLONAZEPAM [Concomitant]
  10. ESZOPICLONE [Concomitant]
  11. BUMETANIDE [Concomitant]
  12. CHLORTHALIDONE [Concomitant]
  13. POTASSIUM [Concomitant]
  14. DARIFENACIN HYDROBROMIDE [Concomitant]
  15. SPIRONOLACTONE [Concomitant]
  16. INSULIN RECOMBINANT HUMAN; INSULIN SUSP ISOPHANE RECOMBINANT HUMAN [Concomitant]
  17. TESTOSTERONE [Concomitant]
  18. LEVOTHYROXINE SODIUM [Concomitant]
  19. VITAMIN D [Concomitant]
  20. OMEGA 3 FISH OIL [Concomitant]

REACTIONS (4)
  - Fall [None]
  - Upper limb fracture [None]
  - Impaired healing [None]
  - Muscular weakness [None]
